FAERS Safety Report 7725099-6 (Version None)
Quarter: 2011Q3

REPORT INFORMATION
  Report Type: 
  Country: None (occurrence: None)
  Receive Date: 20110901
  Receipt Date: 20110819
  Transmission Date: 20111222
  Serious: Yes (Other)
  Sender: FDA-Public Use
  Company Number: US-BAYER-2011-030549

PATIENT
  Sex: Female
  Weight: 55 kg

DRUGS (9)
  1. GADOLINIUM IN UNSPECIFIED DRUG [Suspect]
     Indication: VENOGRAM
     Dosage: UNK
     Dates: start: 20050310, end: 20050310
  2. GADOLINIUM IN UNSPECIFIED DRUG [Suspect]
     Dosage: UNK
     Dates: start: 20050426, end: 20050426
  3. OMNISCAN [Suspect]
     Indication: NUCLEAR MAGNETIC RESONANCE IMAGING BRAIN
     Dosage: UNK
     Dates: start: 19990521, end: 19990521
  4. GADOLINIUM IN UNSPECIFIED DRUG [Suspect]
     Indication: NUCLEAR MAGNETIC RESONANCE IMAGING BRAIN
     Dosage: UNK
     Dates: start: 19990417, end: 19990417
  5. OMNISCAN [Suspect]
     Dosage: UNK
     Dates: start: 20000705, end: 20000705
  6. GADOLINIUM IN UNSPECIFIED DRUG [Suspect]
     Dosage: UNK
     Dates: start: 20060830, end: 20060830
  7. GADOLINIUM IN UNSPECIFIED DRUG [Suspect]
     Indication: FISTULOGRAM
     Dosage: UNK
     Dates: start: 20050422, end: 20050422
  8. GADOLINIUM IN UNSPECIFIED DRUG [Suspect]
     Dosage: UNK
     Dates: start: 20060110, end: 20060110
  9. GADOLINIUM IN UNSPECIFIED DRUG [Suspect]
     Indication: ARTERIOGRAM
     Dosage: UNK
     Dates: start: 20050301, end: 20050301

REACTIONS (19)
  - DRY SKIN [None]
  - SKIN FIBROSIS [None]
  - EXTREMITY CONTRACTURE [None]
  - RENAL FAILURE CHRONIC [None]
  - NEPHROGENIC SYSTEMIC FIBROSIS [None]
  - JOINT STIFFNESS [None]
  - JOINT CONTRACTURE [None]
  - FEAR OF DEATH [None]
  - MYOSCLEROSIS [None]
  - SKIN HYPERTROPHY [None]
  - ANHEDONIA [None]
  - SKIN INDURATION [None]
  - SKIN HYPERPIGMENTATION [None]
  - SKIN PLAQUE [None]
  - PAIN [None]
  - SKIN TIGHTNESS [None]
  - OEDEMA PERIPHERAL [None]
  - MOBILITY DECREASED [None]
  - PRURITUS [None]
